FAERS Safety Report 10500760 (Version 3)
Quarter: 2014Q4

REPORT INFORMATION
  Report Type: Report from Study
  Country: US (occurrence: US)
  Receive Date: 20141007
  Receipt Date: 20141007
  Transmission Date: 20150528
  Serious: Yes (Hospitalization, Other)
  Sender: FDA-Public Use
  Company Number: US-ROCHE-1467356

PATIENT
  Age: 60 Year
  Sex: Female
  Weight: 80.81 kg

DRUGS (2)
  1. OXALIPLATIN. [Concomitant]
     Active Substance: OXALIPLATIN
     Indication: COLORECTAL CANCER
     Dosage: LAST DOSE ON 28/JUL/2014
     Route: 042
     Dates: start: 2013, end: 20140728
  2. AVASTIN [Suspect]
     Active Substance: BEVACIZUMAB
     Indication: COLORECTAL CANCER METASTATIC
     Route: 042
     Dates: start: 2013

REACTIONS (3)
  - Fistula [Not Recovered/Not Resolved]
  - White blood cell count decreased [Unknown]
  - Rectal fissure [Not Recovered/Not Resolved]

NARRATIVE: CASE EVENT DATE: 20140825
